FAERS Safety Report 6307662-2 (Version None)
Quarter: 2009Q3

REPORT INFORMATION
  Report Type: 
  Country: None (occurrence: None)
  Receive Date: 20090813
  Receipt Date: 20090805
  Transmission Date: 20100115
  Serious: Yes (Other)
  Sender: FDA-Public Use
  Company Number: PHEH2009US08824

PATIENT
  Sex: Male

DRUGS (13)
  1. RECLAST [Suspect]
     Dosage: UNK
     Route: 042
     Dates: start: 20080801
  2. TESTIM [Concomitant]
  3. SIMVASTATIN [Concomitant]
  4. ZETIA [Concomitant]
  5. LISINOPRIL [Concomitant]
  6. METOPROLOL [Concomitant]
  7. REQUIP [Concomitant]
  8. PREVACID [Concomitant]
  9. CYMBALTA [Concomitant]
  10. LOVAZA [Concomitant]
  11. VITAMIN D [Concomitant]
  12. OYSCO [Concomitant]
  13. QUININE [Concomitant]

REACTIONS (8)
  - ARTHRALGIA [None]
  - BONE PAIN [None]
  - ENDODONTIC PROCEDURE [None]
  - JAW DISORDER [None]
  - MYALGIA [None]
  - NEURALGIA [None]
  - PRURITUS [None]
  - RASH GENERALISED [None]
